FAERS Safety Report 18533410 (Version 2)
Quarter: 2021Q1

REPORT INFORMATION
  Report Type: Report from Study
  Country: BR (occurrence: BR)
  Receive Date: 20201123
  Receipt Date: 20210301
  Transmission Date: 20210419
  Serious: Yes (Death)
  Sender: FDA-Public Use
  Company Number: NVSC2020BR312118

PATIENT
  Sex: Female

DRUGS (1)
  1. VOTRIENT [Suspect]
     Active Substance: PAZOPANIB HYDROCHLORIDE
     Indication: NEOPLASM MALIGNANT
     Dosage: UNK
     Route: 065
     Dates: start: 20200904

REACTIONS (5)
  - Drug ineffective [Unknown]
  - Multiple organ dysfunction syndrome [Fatal]
  - Metastases to liver [Fatal]
  - Renal cancer [Fatal]
  - Feeling abnormal [Unknown]
